FAERS Safety Report 7788699-3 (Version None)
Quarter: 2011Q3

REPORT INFORMATION
  Report Type: 
  Country: None (occurrence: None)
  Receive Date: 20110930
  Receipt Date: 20110922
  Transmission Date: 20111222
  Serious: Yes (Other)
  Sender: FDA-Public Use
  Company Number: TH-SANOFI-AVENTIS-2011SA061968

PATIENT
  Age: 27 Year
  Sex: Female
  Weight: 56.2 kg

DRUGS (5)
  1. BLINDED THERAPY [Suspect]
     Route: 065
     Dates: start: 20110815
  2. BLINDED THERAPY [Suspect]
     Indication: PULMONARY TUBERCULOSIS
     Route: 065
     Dates: start: 20110815
  3. BLINDED THERAPY [Suspect]
     Route: 065
     Dates: start: 20110815
  4. PYRAZINAMIDE [Suspect]
     Indication: PULMONARY TUBERCULOSIS
     Route: 065
     Dates: start: 20110815
  5. RIFAMPIN [Suspect]
     Indication: PULMONARY TUBERCULOSIS
     Route: 065
     Dates: start: 20110815

REACTIONS (1)
  - TENDONITIS [None]
